FAERS Safety Report 5016622-3 (Version None)
Quarter: 2006Q2

REPORT INFORMATION
  Report Type: 
  Country: None (occurrence: None)
  Receive Date: 20060602
  Receipt Date: 20060526
  Transmission Date: 20061013
  Serious: Yes (Death)
  Sender: FDA-Public Use
  Company Number: 2006JP001491

PATIENT
  Age: 81 Year
  Sex: Male

DRUGS (6)
  1. CEFAZOLIN [Suspect]
     Route: 042
     Dates: start: 20060517, end: 20060520
  2. CARBOHYDRATE [Concomitant]
  3. AMINO ACID INJ [Concomitant]
  4. ELECTROLYTES [Concomitant]
  5. PHENYTOIN [Concomitant]
  6. GAMOFA [Concomitant]

REACTIONS (1)
  - RENAL FAILURE [None]
